FAERS Safety Report 14373281 (Version 1)
Quarter: 2018Q1

REPORT INFORMATION
  Report Type: Other
  Country: FR (occurrence: FR)
  Receive Date: 20180110
  Receipt Date: 20180110
  Transmission Date: 20180509
  Serious: Yes (Hospitalization, Other)
  Sender: FDA-Public Use
  Company Number: FR-GEHC-2018CSU000047

PATIENT

DRUGS (4)
  1. VISIPAQUE [Suspect]
     Active Substance: IODIXANOL
     Indication: PRODUCT USED FOR UNKNOWN INDICATION
     Dosage: UNK, SINGLE
     Route: 013
     Dates: start: 20170206, end: 20170206
  2. LEVETIRACETAM MYLAN PHARMA 500 MG, COMPRIME PELLICULE [Suspect]
     Active Substance: LEVETIRACETAM
     Indication: PROPHYLAXIS
     Route: 048
     Dates: start: 20170129, end: 20170207
  3. IOMERON [Suspect]
     Active Substance: IOMEPROL
     Indication: PRODUCT USED FOR UNKNOWN INDICATION
     Dosage: UNK UNK, SINGLE
     Route: 042
     Dates: start: 20170208, end: 20170208
  4. INEXIUM 40 MG, COMPRIME GASTRO-RESISTANT [Suspect]
     Active Substance: ESOMEPRAZOLE MAGNESIUM
     Indication: PRODUCT USED FOR UNKNOWN INDICATION
     Route: 048
     Dates: start: 20170205, end: 20170214

REACTIONS (2)
  - Mixed liver injury [Recovering/Resolving]
  - Dermatitis exfoliative generalised [Recovered/Resolved]

NARRATIVE: CASE EVENT DATE: 20170207
